FAERS Safety Report 10031329 (Version 1)
Quarter: 2014Q1

REPORT INFORMATION
  Report Type: Spontaneous
  Country: US (occurrence: None)
  Receive Date: 20140306
  Receipt Date: 20140306
  Transmission Date: 20141002
  Serious: Yes (Life-Threatening, Other)
  Sender: FDA-Public Use
  Company Number: 163-21880-12052670

PATIENT
  Age: 72 Year
  Sex: Female
  Weight: 49.2 kg

DRUGS (6)
  1. REVLIMID [Suspect]
     Indication: PLASMA CELL MYELOMA
     Dosage: 25 MG, 1 IN 1 D, PO
     Route: 048
     Dates: start: 200904, end: 2009
  2. CYTOXAN (CYCLOPHOSPHAMIDE) [Concomitant]
  3. HYDROCODONE/APAP (VICODIN) [Concomitant]
  4. LEVOTHYROXINE (LEVOTHYROXINE) [Concomitant]
  5. KLONOPIN (CLONAZEPAM) (TABLETS) [Concomitant]
  6. WARFARIN (WARFARIN) [Concomitant]

REACTIONS (7)
  - Full blood count decreased [None]
  - Red blood cell count decreased [None]
  - White blood cell count decreased [None]
  - Rash pruritic [None]
  - Bone pain [None]
  - Headache [None]
  - Fatigue [None]
